FAERS Safety Report 15334655 (Version 1)
Quarter: 2018Q3

REPORT INFORMATION
  Report Type: Spontaneous
  Country: US (occurrence: US)
  Receive Date: 20180830
  Receipt Date: 20180830
  Transmission Date: 20181010
  Serious: No
  Sender: FDA-Public Use
  Company Number: US-FRESENIUS KABI-FK201809141

PATIENT

DRUGS (2)
  1. DIPRIVAN [Suspect]
     Active Substance: PROPOFOL
     Indication: PRODUCT USED FOR UNKNOWN INDICATION
     Dosage: TYPICAL INDUCTION AGENT DOSE
     Route: 040
  2. FENTANYL. [Concomitant]
     Active Substance: FENTANYL
     Indication: ADJUVANT THERAPY
     Dosage: UNKNOWN
     Route: 065

REACTIONS (1)
  - Therapeutic response decreased [Unknown]
